FAERS Safety Report 6128849-8 (Version None)
Quarter: 2009Q1

REPORT INFORMATION
  Report Type: 
  Country: None (occurrence: None)
  Receive Date: 20090320
  Receipt Date: 20090304
  Transmission Date: 20090719
  Serious: Yes (Hospitalization)
  Sender: FDA-Public Use
  Company Number: 2008S1011874

PATIENT
  Age: 75 Year
  Sex: Female

DRUGS (9)
  1. PHOSPHOSODA FLAVOR NOT SPECIFIED [Suspect]
     Indication: COLONOSCOPY
     Dosage: 90 ML; TOTAL;PO
     Route: 048
     Dates: start: 20070529, end: 20070529
  2. COUMADIN [Concomitant]
  3. LIPITOR [Concomitant]
  4. ACTONEL [Concomitant]
  5. METOPROLOL [Concomitant]
  6. BENAZEPRIL HYDROCHLORIDE [Concomitant]
  7. METFORMIN HCL [Concomitant]
  8. ASPIRIN [Concomitant]
  9. SYNTHROID [Concomitant]

REACTIONS (5)
  - DEHYDRATION [None]
  - DIALYSIS [None]
  - NEPHROPATHY [None]
  - RENAL FAILURE ACUTE [None]
  - RENAL TUBULAR NECROSIS [None]
